FAERS Safety Report 7099567-7 (Version None)
Quarter: 2010Q4

REPORT INFORMATION
  Report Type: 
  Country: None (occurrence: None)
  Receive Date: 20101112
  Receipt Date: 20090323
  Transmission Date: 20110411
  Serious: No
  Sender: FDA-Public Use
  Company Number: US-KINGPHARMUSA00001-K200900326

PATIENT
  Sex: Male

DRUGS (2)
  1. ALTACE [Suspect]
     Dosage: UNK
  2. LYRICA [Concomitant]
     Dosage: UNK

REACTIONS (2)
  - MUSCLE DISORDER [None]
  - NEURALGIA [None]
